FAERS Safety Report 9023363 (Version 3)
Quarter: 2016Q4

REPORT INFORMATION
  Report Type: Spontaneous
  Country: BR (occurrence: BR)
  Receive Date: 20130120
  Receipt Date: 20161008
  Transmission Date: 20170207
  Serious: Yes (Other)
  Sender: FDA-Public Use
  Company Number: BR-AMGEN-BRACT2012037349

PATIENT
  Age: 53 Year
  Sex: Female
  Weight: 70 kg

DRUGS (10)
  1. ENDOFOLIN [Concomitant]
     Active Substance: FOLIC ACID
     Dosage: 5 MG, ONCE WEEKLY
     Dates: start: 2008
  2. DORFLEX [Concomitant]
     Active Substance: CAFFEINE\DIPYRONE\ORPHENADRINE
     Indication: PAIN
     Dosage: UNK
  3. PIROXICAM. [Concomitant]
     Active Substance: PIROXICAM
     Dosage: UNK
  4. METHOTREXATE. [Concomitant]
     Active Substance: METHOTREXATE
     Dosage: 6 TABLETS (0.25MG EACH) THREE TIMES A WEEK
     Route: 048
  5. ENBREL [Suspect]
     Active Substance: ETANERCEPT
     Dosage: 50 MG, ONCE WEEKLY
     Route: 058
     Dates: start: 2011, end: 201208
  6. ENDOFOLIN [Concomitant]
     Active Substance: FOLIC ACID
     Dosage: 2.5 MG, 2X/WEEK
  7. ENBREL [Suspect]
     Active Substance: ETANERCEPT
     Indication: RHEUMATOID ARTHRITIS
     Dosage: 50 MG, WEEKLY
     Route: 058
     Dates: start: 20110911, end: 201111
  8. FLOTAC [Concomitant]
     Active Substance: DICLOFENAC SODIUM
     Dosage: UNK
  9. PIROXAN [Concomitant]
     Dosage: 20 MG, DAILY (BUT DOES NOT USE PIROXAN OFTEN)
  10. METHOTREXATE. [Concomitant]
     Active Substance: METHOTREXATE
     Dosage: TWO TABLETS OF 2.5MG (5MG) 3 TIMES WEEKLY
     Route: 048

REACTIONS (6)
  - Product quality issue [Unknown]
  - Skin disorder [Unknown]
  - Eye ulcer [Unknown]
  - Injection site pain [Unknown]
  - Drug ineffective [Unknown]
  - Blister [Not Recovered/Not Resolved]

NARRATIVE: CASE EVENT DATE: 2011
